FAERS Safety Report 4980389-5 (Version None)
Quarter: 2006Q2

REPORT INFORMATION
  Report Type: 
  Country: None (occurrence: None)
  Receive Date: 20060421
  Receipt Date: 20060421
  Transmission Date: 20061013
  Serious: Yes (Other)
  Sender: FDA-Public Use
  Company Number: None

PATIENT

DRUGS (4)
  1. XANAX [Suspect]
     Indication: ANXIETY
     Dosage: 1 TAB = 1 MG TID PO
     Route: 048
     Dates: start: 20000101, end: 20000129
  2. XANAX [Suspect]
     Indication: NERVOUS SYSTEM DISORDER
     Dosage: 1 TAB = 1 MG TID PO
     Route: 048
     Dates: start: 20000101, end: 20000129
  3. XANAX [Suspect]
     Indication: PANIC DISORDER
     Dosage: 1 TAB = 1 MG TID PO
     Route: 048
     Dates: start: 20000101, end: 20000129
  4. XANAX [Suspect]
     Indication: POST-TRAUMATIC STRESS DISORDER
     Dosage: 1 TAB = 1 MG TID PO
     Route: 048
     Dates: start: 20000101, end: 20000129

REACTIONS (1)
  - DRUG EFFECT DECREASED [None]
